FAERS Safety Report 7406413-8 (Version None)
Quarter: 2011Q2

REPORT INFORMATION
  Report Type: 
  Country: None (occurrence: None)
  Receive Date: 20110411
  Receipt Date: 20110329
  Transmission Date: 20111010
  Serious: Yes (Other)
  Sender: FDA-Public Use
  Company Number: PHHY2011US21519

PATIENT
  Sex: Female

DRUGS (6)
  1. TRICOR [Concomitant]
     Indication: BLOOD TRIGLYCERIDES INCREASED
     Dosage: 48 G, QD
     Route: 048
  2. ZETIA [Concomitant]
     Indication: HYPERLIPIDAEMIA
     Dosage: 10 G, QD
     Route: 048
     Dates: start: 20030701
  3. ATENOLOL [Concomitant]
     Indication: HYPERTENSION
     Dosage: 25 G, QD
     Route: 048
     Dates: start: 20070701
  4. DIOVAN HCT [Suspect]
     Indication: HYPERTENSION
     Dosage: 1 DF, BID (160/12.5 MG)
     Route: 048
     Dates: start: 20020901
  5. NORVASC [Concomitant]
     Indication: HYPERTENSION
     Dosage: 10 G, QD
     Dates: start: 20060201
  6. ANTIHYPERTENSIVE DRUGS [Concomitant]
     Dosage: UNK

REACTIONS (3)
  - BLINDNESS [None]
  - VISION BLURRED [None]
  - GLAUCOMA [None]
